FAERS Safety Report 11814405 (Version 2)
Quarter: 2015Q4

REPORT INFORMATION
  Report Type: Spontaneous
  Country: US (occurrence: US)
  Receive Date: 20151209
  Receipt Date: 20151223
  Transmission Date: 20160305
  Serious: Yes (Death, Hospitalization)
  Sender: FDA-Public Use
  Company Number: US-ACTELION-A-US2015-128133

PATIENT
  Age: 68 Year
  Sex: Female

DRUGS (25)
  1. SYMBICORT [Concomitant]
     Active Substance: BUDESONIDE\FORMOTEROL FUMARATE DIHYDRATE
  2. IPRATROPIUM [Concomitant]
     Active Substance: IPRATROPIUM
  3. MULTIVITAMIN [Concomitant]
     Active Substance: VITAMINS
  4. BUMEX [Concomitant]
     Active Substance: BUMETANIDE
     Dosage: 2 MG, QD
  5. BIOTIN [Concomitant]
     Active Substance: BIOTIN
  6. BENADRYL [Concomitant]
     Active Substance: DIPHENHYDRAMINE HYDROCHLORIDE
  7. EMETROL [Concomitant]
  8. VELETRI [Suspect]
     Active Substance: EPOPROSTENOL
     Indication: PULMONARY ARTERIAL HYPERTENSION
     Dosage: 26 NG/KG, PER MIN
     Route: 042
     Dates: start: 20150619, end: 20151128
  9. LETAIRIS [Concomitant]
     Active Substance: AMBRISENTAN
  10. ACETAMINOPHEN. [Concomitant]
     Active Substance: ACETAMINOPHEN
     Dosage: 500 UNK, UNK
  11. VITAMIN D [Concomitant]
     Active Substance: CHOLECALCIFEROL
  12. LOPERAMIDE [Concomitant]
     Active Substance: LOPERAMIDE
  13. SPIRONOLACTONE. [Concomitant]
     Active Substance: SPIRONOLACTONE
  14. LISINOPRIL. [Concomitant]
     Active Substance: LISINOPRIL
  15. MYCOPHENOLATE MOFETIL. [Concomitant]
     Active Substance: MYCOPHENOLATE MOFETIL
  16. SERTRALINE [Concomitant]
     Active Substance: SERTRALINE HYDROCHLORIDE
  17. SIMVASTATIN. [Concomitant]
     Active Substance: SIMVASTATIN
  18. POTASSIUM [Concomitant]
     Active Substance: POTASSIUM
  19. CALCIUM + VITAMIN D [Concomitant]
     Active Substance: CALCIUM\VITAMIN D
  20. PREDNISONE. [Concomitant]
     Active Substance: PREDNISONE
  21. OXYGEN. [Concomitant]
     Active Substance: OXYGEN
  22. TORSEMIDE. [Concomitant]
     Active Substance: TORSEMIDE
  23. FERROUS SULFATE [Concomitant]
     Active Substance: FERROUS SULFATE\FERROUS SULFATE, DRIED
  24. OMEPRAZOLE. [Concomitant]
     Active Substance: OMEPRAZOLE
  25. VITAMIN E [Concomitant]
     Active Substance: .ALPHA.-TOCOPHEROL

REACTIONS (1)
  - Respiratory failure [Fatal]

NARRATIVE: CASE EVENT DATE: 20151128
